FAERS Safety Report 8971580 (Version 1)
Quarter: 2012Q4

REPORT INFORMATION
  Report Type: 
  Country: US (occurrence: US)
  Receive Date: 20121211
  Receipt Date: 20121211
  Transmission Date: 20130627
  Serious: Yes (Hospitalization, Other)
  Sender: FDA-Public Use
  Company Number: US-PFIZER INC-2012309378

PATIENT
  Sex: Female

DRUGS (1)
  1. ZOLOFT [Suspect]
     Indication: NERVOUS SYSTEM DISORDER
     Dosage: UNK

REACTIONS (2)
  - Electrolyte imbalance [Unknown]
  - Off label use [Unknown]
